FAERS Safety Report 4481098-1 (Version None)
Quarter: 2004Q4

REPORT INFORMATION
  Report Type: 
  Country: None (occurrence: None)
  Receive Date: 20041021
  Receipt Date: 20041001
  Transmission Date: 20050328
  Serious: Yes (Hospitalization)
  Sender: FDA-Public Use
  Company Number: NO-MERCK-0410NOR00004

PATIENT
  Age: 41 Year
  Sex: Female

DRUGS (2)
  1. MAXALT [Suspect]
     Route: 048
  2. LEVONORGESTREL [Suspect]
     Indication: CONTRACEPTION
     Route: 067
     Dates: start: 20021001, end: 20040801

REACTIONS (2)
  - CEREBRAL INFARCTION [None]
  - DRUG INTERACTION [None]
